FAERS Safety Report 4291573-0 (Version None)
Quarter: 2004Q1

REPORT INFORMATION
  Report Type: 
  Country: None (occurrence: None)
  Receive Date: 20040211
  Receipt Date: 20031001
  Transmission Date: 20041129
  Serious: No
  Sender: FDA-Public Use
  Company Number: US-GLAXOSMITHKLINE-A0428271A

PATIENT
  Sex: Female

DRUGS (16)
  1. IMITREX [Suspect]
     Indication: MIGRAINE
     Route: 058
     Dates: start: 20030930, end: 20030930
  2. IMITREX [Suspect]
     Route: 048
  3. IMITREX [Suspect]
     Route: 045
  4. PREMARIN [Concomitant]
     Dosage: .9MG PER DAY
  5. PAXIL [Concomitant]
     Dosage: 40MG PER DAY
  6. PLENDIL [Concomitant]
     Dosage: 2.5MG PER DAY
  7. LISINOPRIL [Concomitant]
  8. PEPCID [Concomitant]
     Dosage: 20MG PER DAY
  9. PROTONIX [Concomitant]
  10. FIORICET [Concomitant]
  11. MULTI-VITAMIN [Concomitant]
  12. POTASSIUM [Concomitant]
  13. MAG-OX [Concomitant]
  14. THIAMINE HCL [Concomitant]
  15. SUDAFED S.A. [Concomitant]
  16. ACTIFED [Concomitant]

REACTIONS (3)
  - BURNING SENSATION [None]
  - DRUG INEFFECTIVE [None]
  - PHARMACEUTICAL PRODUCT COMPLAINT [None]
